FAERS Safety Report 15839022 (Version 4)
Quarter: 2023Q2

REPORT INFORMATION
  Report Type: Spontaneous
  Country: CZ (occurrence: CZ)
  Receive Date: 20190117
  Receipt Date: 20230404
  Transmission Date: 20230722
  Serious: Yes (Other)
  Sender: FDA-Public Use
  Company Number: CZ-PFIZER INC-2018200446

PATIENT
  Age: 65 Year
  Sex: Female

DRUGS (9)
  1. PACLITAXEL [Suspect]
     Active Substance: PACLITAXEL
     Indication: Breast cancer
     Dosage: UNK UNK, QW (UNK, WEEKLY)
     Route: 042
     Dates: start: 2008, end: 2008
  2. PACLITAXEL [Suspect]
     Active Substance: PACLITAXEL
     Indication: Invasive ductal breast carcinoma
     Dosage: UNK UNK, QW
     Route: 065
  3. DOXORUBICIN [Suspect]
     Active Substance: DOXORUBICIN
     Indication: Breast cancer
     Dosage: UNK, CYCLIC (EVERY 21 DAYS)
     Route: 065
  4. DOXORUBICIN [Suspect]
     Active Substance: DOXORUBICIN
     Indication: Invasive ductal breast carcinoma
     Dosage: UNK, TIW, Q3W
     Route: 042
     Dates: start: 2008, end: 2008
  5. DOXORUBICIN [Suspect]
     Active Substance: DOXORUBICIN
     Dosage: UNK, 4X EVERY 21 DAYS
     Route: 065
     Dates: start: 2008, end: 2008
  6. TRASTUZUMAB [Suspect]
     Active Substance: TRASTUZUMAB
     Indication: Breast cancer
     Dosage: UNK, WEEKLY WITH PACLITAXEL FOR 12 WEEKS.
     Route: 065
  7. TRASTUZUMAB [Suspect]
     Active Substance: TRASTUZUMAB
     Indication: Invasive ductal breast carcinoma
  8. CYCLOPHOSPHAMIDE [Suspect]
     Active Substance: CYCLOPHOSPHAMIDE
     Indication: Invasive ductal breast carcinoma
     Dosage: UNK, CYCLIC (EVERY 21 DAYS)
     Route: 065
  9. CYCLOPHOSPHAMIDE [Suspect]
     Active Substance: CYCLOPHOSPHAMIDE
     Indication: Breast cancer
     Dosage: 1 UNK, Q3W(UNK UNK, TIW)
     Route: 065

REACTIONS (4)
  - Neutropenia [Unknown]
  - Nausea [Unknown]
  - Invasive ductal breast carcinoma [Recovered/Resolved]
  - Malignant neoplasm progression [Recovered/Resolved]
